FAERS Safety Report 7319855-6 (Version None)
Quarter: 2011Q1

REPORT INFORMATION
  Report Type: 
  Country: None (occurrence: None)
  Receive Date: 20110228
  Receipt Date: 20101026
  Transmission Date: 20110831
  Serious: No
  Sender: FDA-Public Use
  Company Number: A0888793A

PATIENT
  Sex: Female

DRUGS (3)
  1. GEODON [Concomitant]
  2. LEXAPRO [Concomitant]
  3. LAMICTAL [Suspect]
     Indication: BIPOLAR DISORDER
     Dosage: 200MG TWICE PER DAY
     Route: 048
     Dates: start: 20090101

REACTIONS (3)
  - DRUG ADMINISTRATION ERROR [None]
  - WITHDRAWAL SYNDROME [None]
  - FEELING ABNORMAL [None]
